FAERS Safety Report 8773797 (Version 2)
Quarter: 2012Q4

REPORT INFORMATION
  Report Type: 
  Country: US (occurrence: US)
  Receive Date: 20120907
  Receipt Date: 20121119
  Transmission Date: 20130627
  Serious: No
  Sender: FDA-Public Use
  Company Number: US-009507513-1208USA009948

PATIENT
  Age: 9 Year
  Sex: Female
  Weight: 54.42 kg

DRUGS (2)
  1. CLARITIN CHEWABLE TABLETS [Suspect]
     Indication: ALLERGY TO ANIMAL
     Dosage: 5 mg, bid
     Route: 048
     Dates: start: 20120808, end: 20120815
  2. CLARITIN CHEWABLE TABLETS [Suspect]
     Indication: MEDICAL OBSERVATION

REACTIONS (2)
  - Fatigue [Recovered/Resolved]
  - Drug ineffective [Unknown]
